FAERS Safety Report 5211914-7 (Version None)
Quarter: 2007Q1

REPORT INFORMATION
  Report Type: 
  Country: None (occurrence: None)
  Receive Date: 20070118
  Receipt Date: 20070116
  Transmission Date: 20070707
  Serious: Yes (Death)
  Sender: FDA-Public Use
  Company Number: US-BRISTOL-MYERS SQUIBB COMPANY-13644570

PATIENT

DRUGS (3)
  1. CARBOPLATIN [Suspect]
     Indication: NON-SMALL CELL LUNG CANCER
  2. PACLITAXEL [Suspect]
     Indication: NON-SMALL CELL LUNG CANCER
  3. BEVACIZUMAB [Suspect]
     Indication: NON-SMALL CELL LUNG CANCER

REACTIONS (2)
  - FEBRILE NEUTROPENIA [None]
  - PULMONARY HAEMORRHAGE [None]
